FAERS Safety Report 9638925 (Version 1)
Quarter: 2013Q4

REPORT INFORMATION
  Report Type: Spontaneous
  Country: US (occurrence: US)
  Receive Date: 20131022
  Receipt Date: 20131022
  Transmission Date: 20140711
  Serious: No
  Sender: FDA-Public Use
  Company Number: US-BRISTOL-MYERS SQUIBB COMPANY-19078492

PATIENT
  Sex: Female
  Weight: 73.47 kg

DRUGS (3)
  1. ELIQUIS [Suspect]
     Indication: ATRIAL FIBRILLATION
     Dosage: LAST DOSE : 11APR13?MEDICATION FOR 2 MONTHS?BREAKING OUT FOR 6 WEEKS AGO.
  2. METOPROLOL [Concomitant]
  3. FLECAINIDE [Concomitant]

REACTIONS (5)
  - Rash [Unknown]
  - Pruritus [Unknown]
  - Pyrexia [Unknown]
  - Cough [Unknown]
  - Wheezing [Unknown]
